FAERS Safety Report 5537454-3 (Version None)
Quarter: 2007Q4

REPORT INFORMATION
  Report Type: 
  Country: None (occurrence: None)
  Receive Date: 20071207
  Receipt Date: 20071126
  Transmission Date: 20080405
  Serious: Yes (Other)
  Sender: FDA-Public Use
  Company Number: US-AMGEN-QUU254028

PATIENT
  Sex: Female

DRUGS (1)
  1. ENBREL [Suspect]
     Indication: RHEUMATOID ARTHRITIS
     Route: 058
     Dates: start: 20040301

REACTIONS (4)
  - BLINDNESS UNILATERAL [None]
  - CORNEAL SCAR [None]
  - INJECTION SITE PAIN [None]
  - UVEITIS [None]
